FAERS Safety Report 6087497-9 (Version None)
Quarter: 2009Q1

REPORT INFORMATION
  Report Type: 
  Country: None (occurrence: None)
  Receive Date: 20090223
  Receipt Date: 20090210
  Transmission Date: 20090719
  Serious: Yes (Hospitalization)
  Sender: FDA-Public Use
  Company Number: GB-ELI_LILLY_AND_COMPANY-GB200901005132

PATIENT
  Sex: Female

DRUGS (5)
  1. ZYPREXA [Suspect]
     Indication: PSYCHOTIC DISORDER
     Dosage: 5 MG, UNK
     Route: 048
     Dates: start: 20030201, end: 20040628
  2. ZYPREXA [Suspect]
     Dosage: 10 MG, UNK
     Route: 048
  3. MIRTAZAPINE [Concomitant]
     Indication: DEPRESSION
     Dosage: 45 MG, UNK
     Route: 048
  4. VENLAFAXINE HCL [Concomitant]
     Indication: DEPRESSION
     Dosage: 300 MG, UNK
     Route: 048
  5. CLOZAPINE [Concomitant]
     Indication: ANXIETY
     Dosage: 2 MG, 3/D
     Route: 048

REACTIONS (2)
  - HOSPITALISATION [None]
  - TARDIVE DYSKINESIA [None]
